FAERS Safety Report 17759663 (Version 1)
Quarter: 2020Q2

REPORT INFORMATION
  Report Type: Spontaneous
  Country: US (occurrence: US)
  Receive Date: 20200507
  Receipt Date: 20200507
  Transmission Date: 20200714
  Serious: No
  Sender: FDA-Public Use
  Company Number: None

PATIENT
  Age: 50 Year
  Sex: Male

DRUGS (1)
  1. HARVONI [Suspect]
     Active Substance: LEDIPASVIR\SOFOSBUVIR
     Dosage: OTHER DOSE:90/400MG;?
     Route: 048
     Dates: start: 202003

REACTIONS (2)
  - Viral load abnormal [None]
  - Incorrect product administration duration [None]

NARRATIVE: CASE EVENT DATE: 20200507
